FAERS Safety Report 4992044-6 (Version None)
Quarter: 2006Q2

REPORT INFORMATION
  Report Type: 
  Country: None (occurrence: None)
  Receive Date: 20060504
  Receipt Date: 20051003
  Transmission Date: 20061013
  Serious: Yes (Hospitalization, Disabling)
  Sender: FDA-Public Use
  Company Number: US-MERCK-0510USA02854

PATIENT
  Age: 56 Year
  Sex: Female
  Weight: 100 kg

DRUGS (3)
  1. VIOXX [Suspect]
     Indication: ARTHRITIS
     Route: 048
     Dates: start: 20000211, end: 20021024
  2. VIOXX [Suspect]
     Route: 048
     Dates: start: 20000211, end: 20021024
  3. TYLENOL (CAPLET) [Concomitant]
     Route: 065

REACTIONS (4)
  - ANGINA PECTORIS [None]
  - DEPRESSION [None]
  - EROSIVE OESOPHAGITIS [None]
  - MYOCARDIAL INFARCTION [None]
